FAERS Safety Report 23488626 (Version 3)
Quarter: 2024Q1

REPORT INFORMATION
  Report Type: Spontaneous
  Country: GR (occurrence: GR)
  Receive Date: 20240206
  Receipt Date: 20240315
  Transmission Date: 20240409
  Serious: Yes (Hospitalization, Other)
  Sender: FDA-Public Use
  Company Number: GR-009507513-2402GRC001334

PATIENT
  Age: 65 Year
  Sex: Male

DRUGS (1)
  1. KEYTRUDA [Suspect]
     Active Substance: PEMBROLIZUMAB
     Indication: Squamous cell carcinoma of lung
     Dosage: 200 MILLIGRAM, Q3W; ROUTE: INFUSION
     Dates: start: 20221104, end: 20231009

REACTIONS (8)
  - Pancytopenia [Unknown]
  - Neuropathy peripheral [Unknown]
  - Pneumonitis [Recovering/Resolving]
  - Infection [Unknown]
  - Urinary tract infection [Unknown]
  - Ill-defined disorder [Unknown]
  - Myalgia [Unknown]
  - Inappropriate schedule of product administration [Unknown]

NARRATIVE: CASE EVENT DATE: 20230701
